FAERS Safety Report 20974910 (Version 1)
Quarter: 2022Q2

REPORT INFORMATION
  Report Type: Spontaneous
  Country: CN (occurrence: CN)
  Receive Date: 20220617
  Receipt Date: 20220617
  Transmission Date: 20220721
  Serious: Yes (Hospitalization)
  Sender: FDA-Public Use
  Company Number: CN-GLAXOSMITHKLINE-CN2022APC091194

PATIENT

DRUGS (5)
  1. LAMICTAL [Suspect]
     Active Substance: LAMOTRIGINE
     Indication: Bipolar disorder
     Dosage: 50 MG, QD
     Route: 048
     Dates: start: 20220415, end: 20220508
  2. HALOMETASONE [Suspect]
     Active Substance: HALOMETASONE
     Indication: Product used for unknown indication
     Dosage: UNK
     Route: 061
     Dates: start: 202205
  3. OLOPATADINE HYDROCHLORIDE [Suspect]
     Active Substance: OLOPATADINE HYDROCHLORIDE
     Indication: Product used for unknown indication
     Dosage: UNK
     Dates: start: 202205
  4. AMMONIUM GLYCYRRHIZATE\CYSTEINE\GLYCINE [Suspect]
     Active Substance: AMMONIUM GLYCYRRHIZATE\CYSTEINE\GLYCINE
     Indication: Product used for unknown indication
     Dosage: UNK
     Route: 041
     Dates: start: 202205
  5. EPINASTINE [Suspect]
     Active Substance: EPINASTINE
     Indication: Product used for unknown indication
     Dosage: UNK
     Dates: start: 202205

REACTIONS (17)
  - Drug eruption [Recovering/Resolving]
  - Erythema [Recovering/Resolving]
  - Rash papular [Recovering/Resolving]
  - Pruritus [Recovering/Resolving]
  - Viral rash [Recovering/Resolving]
  - Dermatitis allergic [Recovering/Resolving]
  - Rash [Recovering/Resolving]
  - Pyrexia [Recovering/Resolving]
  - Oropharyngeal pain [Recovering/Resolving]
  - Lip swelling [Recovering/Resolving]
  - Swelling face [Recovering/Resolving]
  - Mouth swelling [Recovering/Resolving]
  - Skin temperature [Recovering/Resolving]
  - Oral mucosal exfoliation [Recovering/Resolving]
  - Oral mucosal erythema [Recovering/Resolving]
  - Drug ineffective [Unknown]
  - Product use in unapproved indication [Unknown]

NARRATIVE: CASE EVENT DATE: 20220501
